FAERS Safety Report 20523644 (Version 1)
Quarter: 2022Q1

REPORT INFORMATION
  Report Type: Spontaneous
  Country: US (occurrence: US)
  Receive Date: 20220228
  Receipt Date: 20220228
  Transmission Date: 20220423
  Serious: No
  Sender: FDA-Public Use
  Company Number: US-SA-SAC20220222001674

PATIENT
  Sex: Female

DRUGS (1)
  1. KEVZARA [Suspect]
     Active Substance: SARILUMAB
     Indication: Juvenile idiopathic arthritis
     Dosage: 200 MG, QOW
     Route: 058
     Dates: start: 20220125

REACTIONS (1)
  - Pyrexia [Recovered/Resolved]
